FAERS Safety Report 9786102 (Version 3)
Quarter: 2014Q1

REPORT INFORMATION
  Report Type: Spontaneous
  Country: US (occurrence: None)
  Receive Date: 20131224
  Receipt Date: 20140327
  Transmission Date: 20141002
  Serious: Yes (Death, Hospitalization, Other)
  Sender: FDA-Public Use
  Company Number: 2013-US-004620

PATIENT
  Age: 58 Year
  Sex: Female

DRUGS (11)
  1. XYREM [Suspect]
     Indication: NARCOLEPSY
     Route: 048
     Dates: start: 201309, end: 2013
  2. KLONOPIN (CLONAZEPAM) (TABLETS) [Concomitant]
  3. CRESTOR (ROSUVASTATIN CALCIUM) [Concomitant]
  4. CYMBALTA [Concomitant]
  5. ABILIFY (APIPRAZOLE) [Concomitant]
  6. LAMICTAL (LAMOTRIGINE) [Concomitant]
  7. TRILLEPTAL (OXCARBAZEPINE) [Concomitant]
  8. LASIX (FUROSEMIDE SODIUM) [Concomitant]
  9. METHYLPHENIDATE (METHYLPHENIDATE HYDROCHLORIDE) [Concomitant]
  10. DICLOFENAC (DICLOFENAC SODIUM) [Concomitant]
  11. MISOPROSTOL (MISOPROSTOL) [Concomitant]

REACTIONS (5)
  - Labile blood pressure [None]
  - Abdominal pain [None]
  - Vomiting [None]
  - Pneumonia aspiration [None]
  - Small intestinal obstruction [None]
